FAERS Safety Report 10588038 (Version 2)
Quarter: 2016Q2

REPORT INFORMATION
  Report Type: Spontaneous
  Country: US (occurrence: US)
  Receive Date: 20141117
  Receipt Date: 20160511
  Transmission Date: 20160815
  Serious: Yes (Other)
  Sender: FDA-Public Use
  Company Number: US-ABBVIE-14P-163-1307265-00

PATIENT
  Sex: Male

DRUGS (1)
  1. CREON [Suspect]
     Active Substance: PANCRELIPASE AMYLASE\PANCRELIPASE LIPASE\PANCRELIPASE PROTEASE
     Indication: PRODUCT USED FOR UNKNOWN INDICATION
     Route: 065

REACTIONS (7)
  - Osteoporotic fracture [Unknown]
  - Rash [Unknown]
  - Emphysema [Unknown]
  - Pancreatitis [Unknown]
  - Type 2 diabetes mellitus [Unknown]
  - Liver disorder [Unknown]
  - Cough [Unknown]
